FAERS Safety Report 7105826-1 (Version None)
Quarter: 2010Q4

REPORT INFORMATION
  Report Type: 
  Country: None (occurrence: None)
  Receive Date: 20101110
  Receipt Date: 20101102
  Transmission Date: 20110411
  Serious: Yes (Death, Hospitalization)
  Sender: FDA-Public Use
  Company Number: UTC-001510

PATIENT
  Age: 52 Year
  Sex: Female

DRUGS (3)
  1. TYVASO [Suspect]
     Indication: PULMONARY ARTERIAL HYPERTENSION
     Dosage: 216 MCG (54 MCG, 4 IN 1 D) INHALATION
     Route: 055
     Dates: start: 20100720
  2. REVATIO [Concomitant]
  3. TRACLEER [Concomitant]

REACTIONS (5)
  - COMA [None]
  - DYSPNOEA [None]
  - GAIT DISTURBANCE [None]
  - PAIN IN EXTREMITY [None]
  - SWELLING [None]
